FAERS Safety Report 5147946-7 (Version None)
Quarter: 2006Q4

REPORT INFORMATION
  Report Type: 
  Country: None (occurrence: None)
  Receive Date: 20061110
  Receipt Date: 20061106
  Transmission Date: 20070319
  Serious: Yes (Death, Hospitalization)
  Sender: FDA-Public Use
  Company Number: TW-BAYER-200615630GDS

PATIENT
  Age: 83 Year
  Sex: Female

DRUGS (6)
  1. CIPROFLOXACIN [Suspect]
     Indication: INFECTION
     Route: 065
  2. CEFOTIAM HYDROCHLORIDE [Suspect]
     Indication: INFECTION
     Route: 065
  3. CEFTRIAXONE [Suspect]
     Indication: INFECTION
     Route: 065
  4. IMIPENEM [Suspect]
     Indication: INFECTION
     Route: 065
  5. VANCOMYCIN [Suspect]
     Indication: INFECTION
     Route: 065
  6. FLUCONAZOLE [Suspect]
     Indication: INFECTION
     Route: 065

REACTIONS (1)
  - CLOSTRIDIUM DIFFICILE COLITIS [None]
